FAERS Safety Report 17869010 (Version 4)
Quarter: 2020Q4

REPORT INFORMATION
  Report Type: Report from Study
  Country: None (occurrence: US)
  Receive Date: 20200608
  Receipt Date: 20201125
  Transmission Date: 20210113
  Serious: Yes (Other)
  Sender: FDA-Public Use
  Company Number: US-ABBVIE-20K-163-3340642-00

PATIENT
  Age: 67 Year
  Sex: Female
  Weight: 68.1 kg

DRUGS (4)
  1. HUMIRA [Suspect]
     Active Substance: ADALIMUMAB
     Indication: CROHN^S DISEASE
     Route: 058
     Dates: start: 2017
  2. ENTYVIO [Suspect]
     Active Substance: VEDOLIZUMAB
     Indication: CROHN^S DISEASE
     Route: 065
  3. HUMIRA [Suspect]
     Active Substance: ADALIMUMAB
     Dosage: CITRATE FREE
     Route: 058
  4. HUMIRA [Suspect]
     Active Substance: ADALIMUMAB
     Indication: CROHN^S DISEASE
     Dosage: CITRATE FREE
     Route: 058

REACTIONS (18)
  - Full blood count abnormal [Not Recovered/Not Resolved]
  - Serum ferritin decreased [Recovered/Resolved]
  - Platelet count decreased [Not Recovered/Not Resolved]
  - Injection site pain [Recovered/Resolved]
  - Cholecystectomy [Unknown]
  - Faeces soft [Not Recovered/Not Resolved]
  - Serum ferritin decreased [Not Recovered/Not Resolved]
  - Anaemia [Recovering/Resolving]
  - Rotator cuff syndrome [Recovered/Resolved]
  - Food craving [Recovering/Resolving]
  - Fall [Unknown]
  - White blood cell count decreased [Not Recovered/Not Resolved]
  - Immunosuppression [Not Recovered/Not Resolved]
  - Radius fracture [Recovering/Resolving]
  - Diarrhoea [Not Recovered/Not Resolved]
  - Wrist fracture [Recovering/Resolving]
  - Immunodeficiency [Not Recovered/Not Resolved]
  - Ulna fracture [Recovering/Resolving]

NARRATIVE: CASE EVENT DATE: 2018
